FAERS Safety Report 10557859 (Version 2)
Quarter: 2016Q1

REPORT INFORMATION
  Report Type: Report from Study
  Country: DE (occurrence: DE)
  Receive Date: 20141031
  Receipt Date: 20160310
  Transmission Date: 20160525
  Serious: Yes (Hospitalization)
  Sender: FDA-Public Use
  Company Number: DE-TEVA-517186GER

PATIENT
  Age: 4 Decade
  Sex: Female
  Weight: 75 kg

DRUGS (6)
  1. ETOPOSIDE. [Suspect]
     Active Substance: ETOPOSIDE
     Indication: HODGKIN^S DISEASE
     Dosage: LAST DOSE PRIOR AE: 25-JUN-2014
     Route: 042
     Dates: start: 20140623, end: 20140716
  2. DOXORUBICIN [Suspect]
     Active Substance: DOXORUBICIN
     Indication: HODGKIN^S DISEASE
     Dosage: LAST DOSE PRIOR AE: 23-JUN-2014
     Route: 042
     Dates: start: 20140623, end: 20140714
  3. BLEOMYCIN [Concomitant]
     Active Substance: BLEOMYCIN SULFATE
     Indication: HODGKIN^S DISEASE
     Dosage: LAST DOSE PRIOR AE: 01-JUL-2014
     Route: 042
     Dates: start: 20140701
  4. LONQUEX [Suspect]
     Active Substance: LIPEGFILGRASTIM
     Indication: NEUTROPENIA
     Dosage: LAST DOSE PRIOR AE: 26-JUN-2014
     Dates: start: 20140626, end: 20140718
  5. VINCRISTINE [Suspect]
     Active Substance: VINCRISTINE
     Indication: HODGKIN^S DISEASE
     Dosage: LAST DOSE PRIOR AE: 30-JUN-2014
     Route: 042
     Dates: start: 20140630, end: 20140721
  6. CYCLOPHOSPHAMIDE. [Suspect]
     Active Substance: CYCLOPHOSPHAMIDE
     Indication: HODGKIN^S DISEASE
     Dosage: LAST DOSE PRIOR AE: 23-JUN-2014
     Route: 042
     Dates: start: 20140623, end: 20140714

REACTIONS (1)
  - Febrile neutropenia [Recovered/Resolved]

NARRATIVE: CASE EVENT DATE: 20140701
